FAERS Safety Report 25897514 (Version 1)
Quarter: 2025Q4

REPORT INFORMATION
  Report Type: Spontaneous
  Country: EU (occurrence: EU)
  Receive Date: 20251008
  Receipt Date: 20251008
  Transmission Date: 20260118
  Serious: Yes (Other)
  Sender: AMGEN
  Company Number: EU-AMGEN-FRASP2025196737

PATIENT

DRUGS (2)
  1. BEVACIZUMAB [Suspect]
     Active Substance: BEVACIZUMAB
     Indication: Hepatocellular carcinoma
     Dosage: 15 MILLIGRAM/KILOGRAM, Q3WK
     Route: 040
  2. ATEZOLIZUMAB [Concomitant]
     Active Substance: ATEZOLIZUMAB
     Indication: Hepatocellular carcinoma
     Dosage: 1200 MILLIGRAM, Q3WK
     Route: 040

REACTIONS (22)
  - Hepatocellular carcinoma [Unknown]
  - Hepatic encephalopathy [Unknown]
  - Thrombocytopenic purpura [Unknown]
  - Adrenal insufficiency [Unknown]
  - Pneumonitis [Unknown]
  - Colitis [Unknown]
  - Ascites [Unknown]
  - Hepatitis [Unknown]
  - Gastric varices haemorrhage [Unknown]
  - Hepatic cirrhosis [Unknown]
  - Gastrointestinal haemorrhage [Unknown]
  - Neuropathy peripheral [Unknown]
  - Hyperthyroidism [Unknown]
  - Drug effective for unapproved indication [Unknown]
  - Skin toxicity [Unknown]
  - Arthritis [Unknown]
  - Jaundice [Unknown]
  - Myositis [Unknown]
  - Off label use [Unknown]
  - Hypertension [Unknown]
  - Proteinuria [Unknown]
  - Haemorrhage [Unknown]
